FAERS Safety Report 14474439 (Version 1)
Quarter: 2018Q1

REPORT INFORMATION
  Report Type: Spontaneous
  Country: US (occurrence: US)
  Receive Date: 20180201
  Receipt Date: 20180201
  Transmission Date: 20180509
  Serious: Yes (Disabling, Other)
  Sender: FDA-Public Use
  Company Number: US-JNJFOC-20180137391

PATIENT
  Sex: Male

DRUGS (1)
  1. RISPERDAL [Suspect]
     Active Substance: RISPERIDONE
     Indication: PRODUCT USED FOR UNKNOWN INDICATION
     Route: 048

REACTIONS (8)
  - Drooling [Unknown]
  - Schizophrenia [Unknown]
  - Abnormal behaviour [Unknown]
  - Road traffic accident [Unknown]
  - Adverse drug reaction [Unknown]
  - Suicidal ideation [Unknown]
  - Loss of employment [Unknown]
  - Gynaecomastia [Unknown]
